FAERS Safety Report 7955955-5 (Version None)
Quarter: 2011Q4

REPORT INFORMATION
  Report Type: 
  Country: None (occurrence: None)
  Receive Date: 20111205
  Receipt Date: 20111130
  Transmission Date: 20120403
  Serious: No
  Sender: FDA-Public Use
  Company Number: US-BIOGENIDEC-2011BI045449

PATIENT
  Age: 66 Year
  Sex: Male

DRUGS (3)
  1. TYSABRI [Suspect]
     Indication: MULTIPLE SCLEROSIS
     Route: 042
     Dates: start: 20070401
  2. TYSABRI [Suspect]
     Route: 042
     Dates: start: 20070711, end: 20110405
  3. TYSABRI [Suspect]
     Route: 042
     Dates: start: 20111129

REACTIONS (2)
  - FATIGUE [None]
  - URTICARIA [None]
